FAERS Safety Report 10811659 (Version 1)
Quarter: 2015Q1

REPORT INFORMATION
  Report Type: Report from Study
  Country: US (occurrence: US)
  Receive Date: 20150217
  Receipt Date: 20150217
  Transmission Date: 20150721
  Serious: No
  Sender: FDA-Public Use
  Company Number: US-ABBVIE-14K-163-1226551-00

PATIENT
  Sex: Female

DRUGS (4)
  1. OXYCONTIN [Concomitant]
     Active Substance: OXYCODONE HYDROCHLORIDE
     Indication: PRODUCT USED FOR UNKNOWN INDICATION
  2. HUMIRA [Suspect]
     Active Substance: ADALIMUMAB
  3. HUMIRA [Suspect]
     Active Substance: ADALIMUMAB
     Indication: RHEUMATOID ARTHRITIS
  4. HUMIRA [Suspect]
     Active Substance: ADALIMUMAB

REACTIONS (9)
  - Pain [Not Recovered/Not Resolved]
  - Asthma [Unknown]
  - Drug effect decreased [Unknown]
  - Malaise [Unknown]
  - Swelling [Not Recovered/Not Resolved]
  - Bronchitis [Recovered/Resolved]
  - Akinesia [Unknown]
  - Drug ineffective [Unknown]
  - Pneumonia [Unknown]

NARRATIVE: CASE EVENT DATE: 2007
